FAERS Safety Report 12957920 (Version 1)
Quarter: 2016Q4

REPORT INFORMATION
  Report Type: Spontaneous
  Country: US (occurrence: US)
  Receive Date: 20161118
  Receipt Date: 20161118
  Transmission Date: 20170207
  Serious: Yes (Hospitalization)
  Sender: FDA-Public Use
  Company Number: US-ASTRAZENECA-2016SF21347

PATIENT
  Age: 75 Year
  Sex: Male

DRUGS (2)
  1. BICALUTAMIDE. [Suspect]
     Active Substance: BICALUTAMIDE
     Indication: ANTIANDROGEN THERAPY
     Route: 048
  2. GNRH AGONIST [Suspect]
     Active Substance: UNSPECIFIED INGREDIENT
     Indication: ANTIANDROGEN THERAPY
     Route: 065

REACTIONS (1)
  - Neuroendocrine carcinoma metastatic [Unknown]
